FAERS Safety Report 8155200-4 (Version None)
Quarter: 2012Q1

REPORT INFORMATION
  Report Type: 
  Country: None (occurrence: None)
  Receive Date: 20120222
  Receipt Date: 20120214
  Transmission Date: 20120608
  Serious: Yes (Hospitalization)
  Sender: FDA-Public Use
  Company Number: US-AMGEN-USASP2012009908

PATIENT
  Age: 80 Year
  Sex: Female

DRUGS (1)
  1. ENBREL [Suspect]
     Indication: RHEUMATOID ARTHRITIS
     Dosage: 50 MG, QWK
     Dates: start: 20081201, end: 20110801

REACTIONS (10)
  - RENAL DISORDER [None]
  - ABDOMINAL PAIN UPPER [None]
  - POLLAKIURIA [None]
  - INSOMNIA [None]
  - DYSURIA [None]
  - CYSTITIS [None]
  - HYPERSOMNIA [None]
  - CLOSTRIDIAL INFECTION [None]
  - DEHYDRATION [None]
  - ULCER [None]
